FAERS Safety Report 4618874-8 (Version None)
Quarter: 2005Q1

REPORT INFORMATION
  Report Type: 
  Country: None (occurrence: None)
  Receive Date: 20050323
  Receipt Date: 20050310
  Transmission Date: 20050727
  Serious: Yes (Hospitalization)
  Sender: FDA-Public Use
  Company Number: 2005043344

PATIENT
  Sex: Female

DRUGS (7)
  1. XANAX [Suspect]
     Indication: ILL-DEFINED DISORDER
  2. LOSARTAN POTASSIUM [Concomitant]
  3. WARFARIN SODIUM [Concomitant]
  4. DILTIAZEM [Concomitant]
  5. FUROSEMIDE (FUROXEMIDE) [Concomitant]
  6. HYDROCHLOROTHIAZIDE [Concomitant]
  7. REFECOXIB (ROFECOXIB) [Concomitant]

REACTIONS (2)
  - ATRIAL FLUTTER [None]
  - POST PROCEDURAL COMPLICATION [None]
